FAERS Safety Report 10433685 (Version 2)
Quarter: 2015Q3

REPORT INFORMATION
  Report Type: Spontaneous
  Country: BR (occurrence: BR)
  Receive Date: 20140905
  Receipt Date: 20150821
  Transmission Date: 20151125
  Serious: Yes (Hospitalization, Disabling, Other)
  Sender: FDA-Public Use
  Company Number: BR-ABBVIE-14P-020-1280507-00

PATIENT
  Age: 10 Year
  Sex: Female
  Weight: 27 kg

DRUGS (5)
  1. DEPAKENE [Suspect]
     Active Substance: VALPROIC ACID
     Dosage: 10 ML IN THE MORNING, 10ML IN THE AFTERNOON, 10ML AT NIGHT (30 ML DAILY)
     Route: 048
     Dates: start: 2009
  2. ETOXIN [Concomitant]
     Indication: EPILEPSY
     Dosage: 10 ML IN THE MORNING, 10 ML AT NIGHT (DAILY DOSE;20 ML)
     Route: 048
     Dates: start: 2011
  3. DEPAKOTE [Suspect]
     Active Substance: DIVALPROEX SODIUM
     Indication: EPILEPSY
     Route: 065
  4. DEPAKENE [Suspect]
     Active Substance: VALPROIC ACID
     Indication: EPILEPSY
     Dosage: 10ML IN THE MORNING, 5ML IN THE AFTERNOON, 10ML AT NIGHT(25 ML DAILY)
     Route: 048
     Dates: start: 2009
  5. DEPAKOTE ER [Suspect]
     Active Substance: DIVALPROEX SODIUM
     Indication: EPILEPSY
     Route: 048
     Dates: start: 201408

REACTIONS (10)
  - Choking [Recovered/Resolved]
  - Hospitalisation [Recovered/Resolved]
  - Nausea [Recovered/Resolved]
  - Product size issue [Recovered/Resolved]
  - Wrong technique in product usage process [Recovered/Resolved]
  - Abdominal pain [Recovered/Resolved]
  - Product use issue [Recovered/Resolved]
  - Nervousness [Recovered/Resolved]
  - Seizure [Recovered/Resolved]
  - Vomiting [Recovered/Resolved]

NARRATIVE: CASE EVENT DATE: 201408
